FAERS Safety Report 5317164-8 (Version None)
Quarter: 2007Q2

REPORT INFORMATION
  Report Type: 
  Country: None (occurrence: None)
  Receive Date: 20070504
  Receipt Date: 20070423
  Transmission Date: 20071010
  Serious: Yes (Hospitalization, Other)
  Sender: FDA-Public Use
  Company Number: BR-PFIZER INC-2007031556

PATIENT
  Sex: Female

DRUGS (5)
  1. SILDENAFIL (PAH) [Suspect]
     Indication: PULMONARY HYPERTENSION
     Route: 048
  2. AAS [Concomitant]
     Route: 048
  3. CAPOTEN [Concomitant]
     Route: 048
  4. LASIX [Concomitant]
     Route: 048
  5. DIGOXIN [Concomitant]
     Route: 048

REACTIONS (3)
  - ABASIA [None]
  - ASTHENIA [None]
  - PULMONARY HYPERTENSION [None]
